FAERS Safety Report 16988599 (Version 1)
Quarter: 2019Q4

REPORT INFORMATION
  Report Type: Spontaneous
  Country: US (occurrence: US)
  Receive Date: 20191104
  Receipt Date: 20191104
  Transmission Date: 20200122
  Serious: No
  Sender: FDA-Public Use
  Company Number: US-APOTEX-2019AP016594

PATIENT
  Sex: Female

DRUGS (2)
  1. FLONASE                            /00908302/ [Suspect]
     Active Substance: MOMETASONE FUROATE
     Indication: DACRYOSTENOSIS CONGENITAL
     Dosage: UNK
     Route: 065
  2. FLUTICASONE. [Suspect]
     Active Substance: FLUTICASONE
     Indication: DACRYOSTENOSIS CONGENITAL
     Dosage: UNK
     Route: 065

REACTIONS (8)
  - Eye swelling [Not Recovered/Not Resolved]
  - Nasal congestion [Recovering/Resolving]
  - Eye pain [Not Recovered/Not Resolved]
  - Headache [Recovering/Resolving]
  - Product substitution issue [Unknown]
  - Drug ineffective [Unknown]
  - Lacrimation increased [Recovering/Resolving]
  - Condition aggravated [Recovering/Resolving]
